FAERS Safety Report 8840580 (Version 3)
Quarter: 2012Q4

REPORT INFORMATION
  Report Type: 
  Country: US (occurrence: US)
  Receive Date: 20121015
  Receipt Date: 20121120
  Transmission Date: 20130627
  Serious: Yes (Other)
  Sender: FDA-Public Use
  Company Number: US-PFIZER INC-2012253979

PATIENT
  Age: 44 Year
  Sex: Female
  Weight: 111 kg

DRUGS (2)
  1. LYRICA [Suspect]
     Indication: NERVE PAIN
     Dosage: 75 mg, 2x/day
     Dates: start: 2006, end: 2012
  2. PLAQUENIL [Concomitant]
     Indication: LUPUS ERYTHEMATOSUS
     Dosage: 200 mg, 2x/day

REACTIONS (2)
  - Activities of daily living impaired [Unknown]
  - Bedridden [Unknown]
